FAERS Safety Report 10904367 (Version 1)
Quarter: 2015Q1

REPORT INFORMATION
  Report Type: Spontaneous
  Country: JP (occurrence: JP)
  Receive Date: 20150311
  Receipt Date: 20150311
  Transmission Date: 20150721
  Serious: Yes (Hospitalization)
  Sender: FDA-Public Use
  Company Number: JP-PFIZER INC-2015081062

PATIENT

DRUGS (3)
  1. CLARITH [Concomitant]
     Active Substance: CLARITHROMYCIN
     Indication: CHRONIC OBSTRUCTIVE PULMONARY DISEASE
     Dosage: 400 MG, UNK
     Route: 065
  2. SELARA [Suspect]
     Active Substance: EPLERENONE
     Dosage: 100 MG, UNK
     Route: 048
  3. SELARA [Suspect]
     Active Substance: EPLERENONE
     Dosage: 50 MG, 1X/DAY
     Route: 048
     Dates: start: 20150304, end: 20150304

REACTIONS (3)
  - Blood potassium increased [Unknown]
  - C-reactive protein increased [Unknown]
  - Hypotension [Unknown]
